FAERS Safety Report 4296923-7 (Version None)
Quarter: 2004Q1

REPORT INFORMATION
  Report Type: 
  Country: None (occurrence: None)
  Receive Date: 20040213
  Receipt Date: 20040203
  Transmission Date: 20041129
  Serious: Yes (Disabling)
  Sender: FDA-Public Use
  Company Number: 2004PK00270

PATIENT
  Age: 15 Year
  Sex: Male

DRUGS (2)
  1. OMEPRAZOLE [Suspect]
     Dosage: 10 MG DAILY PO
     Route: 048
  2. OMEPRAZOLE [Suspect]
     Dosage: 20 MG DAILY PO
     Route: 048

REACTIONS (3)
  - BLINDNESS UNILATERAL [None]
  - OPTIC ATROPHY [None]
  - PAPILLOEDEMA [None]
